FAERS Safety Report 4448849-3 (Version None)
Quarter: 2004Q3

REPORT INFORMATION
  Report Type: 
  Country: None (occurrence: None)
  Receive Date: 20040909
  Receipt Date: 20040902
  Transmission Date: 20050211
  Serious: Yes (Hospitalization)
  Sender: FDA-Public Use
  Company Number: HQWYE784302SEP04

PATIENT
  Age: 52 Year
  Sex: Female

DRUGS (2)
  1. SUPRAX [Suspect]
     Indication: PAROTITIS
     Dosage: 200 MG 3X PER 1 DAY; ORAL
     Route: 048
     Dates: start: 20040604, end: 20040606
  2. DICLOFENAC [Concomitant]

REACTIONS (2)
  - DRUG ERUPTION [None]
  - RASH MACULO-PAPULAR [None]
